FAERS Safety Report 19954228 (Version 10)
Quarter: 2025Q1

REPORT INFORMATION
  Report Type: Report from Study
  Country: GB (occurrence: GB)
  Receive Date: 20211014
  Receipt Date: 20250220
  Transmission Date: 20250408
  Serious: Yes (Other)
  Sender: TAKEDA
  Company Number: GB-TAKEDA-2021TUS063199

PATIENT
  Sex: Female

DRUGS (4)
  1. VEDOLIZUMAB [Suspect]
     Active Substance: VEDOLIZUMAB
     Indication: Crohn^s disease
     Dosage: 108 MILLIGRAM, Q2WEEKS
  2. VEDOLIZUMAB [Suspect]
     Active Substance: VEDOLIZUMAB
  3. VEDOLIZUMAB [Suspect]
     Active Substance: VEDOLIZUMAB
  4. VEDOLIZUMAB [Suspect]
     Active Substance: VEDOLIZUMAB

REACTIONS (13)
  - Crohn^s disease [Unknown]
  - Hand fracture [Unknown]
  - Cholecystitis [Unknown]
  - Lower respiratory tract infection [Unknown]
  - COVID-19 [Unknown]
  - Product dose omission issue [Unknown]
  - Abdominal pain [Unknown]
  - Alopecia [Unknown]
  - Frequent bowel movements [Unknown]
  - Headache [Unknown]
  - Fatigue [Unknown]
  - Bronchitis [Unknown]
  - Cough [Unknown]
